FAERS Safety Report 7265223-5 (Version None)
Quarter: 2011Q1

REPORT INFORMATION
  Report Type: 
  Country: None (occurrence: None)
  Receive Date: 20110131
  Receipt Date: 20110120
  Transmission Date: 20110831
  Serious: Yes (Hospitalization)
  Sender: FDA-Public Use
  Company Number: JP-JNJFOC-20110107314

PATIENT
  Sex: Male

DRUGS (2)
  1. CRAVIT [Suspect]
     Indication: ENTERITIS INFECTIOUS
     Route: 048
  2. CRAVIT [Suspect]
     Route: 048

REACTIONS (5)
  - PROTEIN URINE PRESENT [None]
  - HYPERHIDROSIS [None]
  - OVERDOSE [None]
  - NAUSEA [None]
  - DEHYDRATION [None]
